FAERS Safety Report 20031087 (Version 1)
Quarter: 2021Q4

REPORT INFORMATION
  Report Type: Spontaneous
  Country: US (occurrence: US)
  Receive Date: 20211103
  Receipt Date: 20211103
  Transmission Date: 20220303
  Serious: No
  Sender: FDA-Public Use
  Company Number: US-ALLERGAN-2101881US

PATIENT
  Age: 59 Year
  Sex: Female
  Weight: 72.562 kg

DRUGS (3)
  1. VRAYLAR [Suspect]
     Active Substance: CARIPRAZINE
     Indication: Bipolar disorder
     Dosage: 6 MG, QPM
     Route: 048
     Dates: start: 20200701, end: 20201209
  2. CYMBALTA [Concomitant]
     Active Substance: DULOXETINE HYDROCHLORIDE
     Indication: Depression
     Dosage: 60 MG, QAM
     Route: 048
     Dates: start: 20201030
  3. MELATONIN [Concomitant]
     Active Substance: MELATONIN
     Indication: Sleep disorder
     Dosage: 3 MG, PRN
     Route: 048

REACTIONS (5)
  - Tooth fracture [Unknown]
  - Bruxism [Unknown]
  - Tardive dyskinesia [Not Recovered/Not Resolved]
  - Trismus [Unknown]
  - Dyskinesia [Unknown]

NARRATIVE: CASE EVENT DATE: 20201023
